FAERS Safety Report 25352779 (Version 1)
Quarter: 2025Q2

REPORT INFORMATION
  Report Type: Spontaneous
  Country: US (occurrence: US)
  Receive Date: 20250523
  Receipt Date: 20250523
  Transmission Date: 20250716
  Serious: Yes (Hospitalization)
  Sender: AZURITY PHARMACEUTICALS
  Company Number: US-AZURITY PHARMACEUTICALS, INC.-AZR202412-001385

PATIENT
  Sex: Female
  Weight: 20.544 kg

DRUGS (2)
  1. XATMEP [Suspect]
     Active Substance: METHOTREXATE
     Indication: Acute lymphocytic leukaemia
     Route: 048
  2. XATMEP [Suspect]
     Active Substance: METHOTREXATE
     Route: 048

REACTIONS (3)
  - Gastric infection [Recovered/Resolved]
  - Illness [Recovered/Resolved]
  - Full blood count decreased [Unknown]
